FAERS Safety Report 24446432 (Version 1)
Quarter: 2024Q4

REPORT INFORMATION
  Report Type: Spontaneous
  Country: US (occurrence: US)
  Receive Date: 20241016
  Receipt Date: 20241016
  Transmission Date: 20250115
  Serious: Yes (Other)
  Sender: BRISTOL-MYERS SQUIBB COMPANY
  Company Number: US-BRISTOL-MYERS SQUIBB COMPANY-2024-162131

PATIENT
  Age: 89 Year
  Sex: Male
  Weight: 67.59 kg

DRUGS (3)
  1. ELIQUIS [Suspect]
     Active Substance: APIXABAN
     Indication: Atrial flutter
     Route: 048
  2. ELIQUIS [Suspect]
     Active Substance: APIXABAN
     Indication: Atrial fibrillation
  3. LOMOTIL [Concomitant]
     Active Substance: ATROPINE SULFATE\DIPHENOXYLATE HYDROCHLORIDE
     Indication: Product used for unknown indication
     Dosage: 0.025 MG-2.5 MG TABLET 1 TAB(S) ORALLY UP TO 3 TIMES A DAY
     Route: 048

REACTIONS (3)
  - Epistaxis [Unknown]
  - Cardiac amyloidosis [Unknown]
  - Weight decreased [Unknown]
